FAERS Safety Report 6591066-1 (Version None)
Quarter: 2010Q1

REPORT INFORMATION
  Report Type: 
  Country: None (occurrence: None)
  Receive Date: 20100219
  Receipt Date: 20100210
  Transmission Date: 20100710
  Serious: Yes (Hospitalization)
  Sender: FDA-Public Use
  Company Number: US-BAYER-201013918NA

PATIENT
  Sex: Female

DRUGS (2)
  1. AVELOX [Suspect]
     Indication: DRUG USE FOR UNKNOWN INDICATION
     Route: 065
  2. CHANTIX [Concomitant]

REACTIONS (4)
  - ANAPHYLACTIC REACTION [None]
  - OEDEMA PERIPHERAL [None]
  - PHARYNGEAL OEDEMA [None]
  - SWELLING FACE [None]
